FAERS Safety Report 10307468 (Version 5)
Quarter: 2018Q4

REPORT INFORMATION
  Report Type: Spontaneous
  Country: JP (occurrence: JP)
  Receive Date: 20140716
  Receipt Date: 20181130
  Transmission Date: 20190204
  Serious: Yes (Death, Other)
  Sender: FDA-Public Use
  Company Number: PHHY2014JP086262

PATIENT
  Age: 78 Year
  Sex: Male

DRUGS (2)
  1. ZOLEDRONATE [Suspect]
     Active Substance: ZOLEDRONIC ACID
     Indication: PROSTATE CANCER METASTATIC
     Dosage: 4 MG, PER ADMINISTRATION
     Route: 065
     Dates: start: 20080423, end: 20110120
  2. ZOLEDRONATE [Suspect]
     Active Substance: ZOLEDRONIC ACID
     Indication: METASTASES TO BONE

REACTIONS (19)
  - Gingival erythema [Unknown]
  - Loose tooth [Unknown]
  - Exposed bone in jaw [Not Recovered/Not Resolved]
  - Swelling [Unknown]
  - Gingivitis [Unknown]
  - Soft tissue infection [Unknown]
  - Respiratory failure [Fatal]
  - Periodontitis [Unknown]
  - Tenderness [Unknown]
  - Pneumonia [Fatal]
  - Prostate cancer [Fatal]
  - Malignant neoplasm progression [Fatal]
  - Purulent discharge [Recovered/Resolved]
  - Bone lesion [Unknown]
  - Osteolysis [Unknown]
  - Pain [Unknown]
  - Osteonecrosis of jaw [Not Recovered/Not Resolved]
  - Fistula [Unknown]
  - Bone disorder [Unknown]

NARRATIVE: CASE EVENT DATE: 20080402
